FAERS Safety Report 5081407-9 (Version None)
Quarter: 2006Q3

REPORT INFORMATION
  Report Type: 
  Country: None (occurrence: None)
  Receive Date: 20060811
  Receipt Date: 20060802
  Transmission Date: 20061208
  Serious: Yes (Life-Threatening, Hospitalization)
  Sender: FDA-Public Use
  Company Number: 146878USA

PATIENT
  Age: 49 Year
  Sex: Male

DRUGS (4)
  1. FLUOROURACIL [Suspect]
     Indication: GASTROOESOPHAGEAL CANCER
     Dates: start: 20060407, end: 20060411
  2. CISPLATIN [Suspect]
     Indication: GASTROOESOPHAGEAL CANCER
     Dates: start: 20060407, end: 20060407
  3. HYDROCODONE BITARTRATE [Concomitant]
  4. ZOFRAN [Concomitant]

REACTIONS (13)
  - ASTHENIA [None]
  - BLOOD BICARBONATE DECREASED [None]
  - ELECTROCARDIOGRAM QT PROLONGED [None]
  - ELECTROCARDIOGRAM T WAVE INVERSION [None]
  - HYPERHIDROSIS [None]
  - HYPONATRAEMIA [None]
  - MALAISE [None]
  - METABOLIC ACIDOSIS [None]
  - MUSCLE SPASMS [None]
  - MUSCULAR WEAKNESS [None]
  - RENAL FAILURE [None]
  - TREMOR [None]
  - VENTRICULAR FIBRILLATION [None]
